FAERS Safety Report 6975931-9 (Version None)
Quarter: 2010Q3

REPORT INFORMATION
  Report Type: 
  Country: None (occurrence: None)
  Receive Date: 20100910
  Receipt Date: 20100830
  Transmission Date: 20110219
  Serious: Yes (Other)
  Sender: FDA-Public Use
  Company Number: US-SANOFI-AVENTIS-2010SA052291

PATIENT
  Sex: Female

DRUGS (4)
  1. MULTAQ [Suspect]
     Indication: ATRIAL FLUTTER
     Route: 048
     Dates: start: 20091101
  2. SYNTHROID [Concomitant]
  3. COUMADIN [Concomitant]
  4. LIPITOR [Concomitant]

REACTIONS (3)
  - CARDIOMEGALY [None]
  - DYSPNOEA EXERTIONAL [None]
  - PULMONARY CONGESTION [None]
